FAERS Safety Report 20014158 (Version 2)
Quarter: 2021Q4

REPORT INFORMATION
  Report Type: Spontaneous
  Country: CH (occurrence: CH)
  Receive Date: 20211029
  Receipt Date: 20211109
  Transmission Date: 20220303
  Serious: No
  Sender: FDA-Public Use
  Company Number: CH-ALXN-A202111595

PATIENT
  Sex: Male

DRUGS (2)
  1. SOLIRIS [Suspect]
     Active Substance: ECULIZUMAB
     Indication: Thrombotic microangiopathy
     Dosage: 900 MG, QW (4 DOSES)
     Route: 042
     Dates: start: 20210221
  2. SOLIRIS [Suspect]
     Active Substance: ECULIZUMAB
     Indication: Off label use
     Dosage: 1200 MG, Q2W (2 DOSES)
     Route: 042
     Dates: start: 20210322

REACTIONS (1)
  - Off label use [Unknown]
